FAERS Safety Report 8619974-8 (Version None)
Quarter: 2012Q3

REPORT INFORMATION
  Report Type: 
  Country: None (occurrence: None)
  Receive Date: 20120816
  Receipt Date: 20120816
  Transmission Date: 20120928
  Serious: No
  Sender: FDA-Public Use
  Company Number: None

PATIENT
  Age: 25 Year
  Sex: Female
  Weight: 51.2565 kg

DRUGS (2)
  1. CALDOLOR [Suspect]
     Indication: ABDOMINAL PAIN
     Dosage: 800MG ONCE IV
     Route: 042
     Dates: start: 20120619, end: 20120619
  2. CALDOLOR [Suspect]
     Indication: PROCEDURAL PAIN
     Dosage: 800MG ONCE IV
     Route: 042
     Dates: start: 20120619, end: 20120619

REACTIONS (4)
  - THROMBOPHLEBITIS SUPERFICIAL [None]
  - PAIN IN EXTREMITY [None]
  - OEDEMA PERIPHERAL [None]
  - DEEP VEIN THROMBOSIS [None]
